FAERS Safety Report 7607821-2 (Version None)
Quarter: 2011Q3

REPORT INFORMATION
  Report Type: 
  Country: None (occurrence: None)
  Receive Date: 20110714
  Receipt Date: 20110707
  Transmission Date: 20111222
  Serious: Yes (Hospitalization)
  Sender: FDA-Public Use
  Company Number: US-BIOGENIDEC-2010BI035911

PATIENT
  Age: 36 Year
  Sex: Male

DRUGS (10)
  1. LUNESTA [Concomitant]
  2. LORAZEPAM [Concomitant]
  3. OXYCONTIN [Concomitant]
     Indication: MULTIPLE SCLEROSIS
  4. FLEXERIL [Concomitant]
     Route: 048
  5. COLACE [Concomitant]
  6. GABAPENTINE [Concomitant]
     Route: 048
  7. LEXAPRO [Concomitant]
     Route: 048
  8. TYSABRI [Suspect]
     Indication: MULTIPLE SCLEROSIS
     Route: 042
     Dates: start: 20100927, end: 20100928
  9. VITAMIN D [Concomitant]
     Indication: VITAMIN D DEFICIENCY
  10. OMEPRAZOLE [Concomitant]
     Route: 048

REACTIONS (3)
  - LOSS OF CONTROL OF LEGS [None]
  - MYOSITIS [None]
  - STAPHYLOCOCCAL INFECTION [None]
